FAERS Safety Report 10527610 (Version 1)
Quarter: 2014Q4

REPORT INFORMATION
  Report Type: Spontaneous
  Country: US (occurrence: US)
  Receive Date: 20141020
  Receipt Date: 20141020
  Transmission Date: 20150528
  Serious: Yes (Other)
  Sender: FDA-Public Use
  Company Number: US-BAYER-2014-151343

PATIENT
  Age: 20 Year
  Sex: Female

DRUGS (1)
  1. MIRENA [Suspect]
     Active Substance: LEVONORGESTREL
     Indication: CONTRACEPTION
     Dosage: 20 MCG/24HR, CONT
     Route: 015
     Dates: start: 201203, end: 201406

REACTIONS (6)
  - Amenorrhoea [None]
  - Abdominal pain lower [None]
  - Menorrhagia [None]
  - Post procedural haemorrhage [None]
  - Menstrual disorder [None]
  - Genital haemorrhage [None]

NARRATIVE: CASE EVENT DATE: 201203
